FAERS Safety Report 7820295 (Version 2)
Quarter: 2014Q1

REPORT INFORMATION
  Report Type: Spontaneous
  Country: US (occurrence: US)
  Receive Date: 20110221
  Receipt Date: 20140210
  Transmission Date: 20141002
  Serious: Yes (Other)
  Sender: FDA-Public Use
  Company Number: US-ROCHE-734092

PATIENT
  Age: 42 Year
  Sex: Female
  Weight: 59 kg

DRUGS (4)
  1. ACCUTANE [Suspect]
     Indication: ACNE
     Dosage: DOSE: 40 MG DAILY WITH MEAL.
     Route: 065
     Dates: start: 19910412, end: 19911122
  2. ACCUTANE [Suspect]
     Route: 065
  3. ACCUTANE [Suspect]
     Dosage: DOSE: 40 MG DAILY
     Route: 065
     Dates: start: 19971023, end: 199804
  4. LEVOTHROID [Concomitant]

REACTIONS (6)
  - Inflammatory bowel disease [Unknown]
  - Colitis ulcerative [Unknown]
  - Diverticulitis [Unknown]
  - Gastrointestinal injury [Unknown]
  - Dry skin [Unknown]
  - Irritable bowel syndrome [Unknown]
